FAERS Safety Report 7110673-0 (Version None)
Quarter: 2010Q4

REPORT INFORMATION
  Report Type: 
  Country: None (occurrence: None)
  Receive Date: 20101118
  Receipt Date: 20101110
  Transmission Date: 20110411
  Serious: Yes (Other)
  Sender: FDA-Public Use
  Company Number: A0797555A

PATIENT
  Age: 57 Year
  Sex: Male
  Weight: 113.6 kg

DRUGS (13)
  1. AVANDIA [Suspect]
     Dosage: 8MG PER DAY
     Route: 048
  2. WELLBUTRIN [Concomitant]
  3. CITALOPRAM HYDROBROMIDE [Concomitant]
  4. KLONOPIN [Concomitant]
  5. LISINOPRIL [Concomitant]
  6. METFORMIN [Concomitant]
  7. METHOCARBAMOL [Concomitant]
  8. RELAFEN [Concomitant]
  9. PANTOPRAZOLE [Concomitant]
  10. QUETIAPINE [Concomitant]
  11. ZANTAC [Concomitant]
  12. SIMVASTATIN [Concomitant]
  13. VARDENAFIL HYDROCHLORIDE (LEVITRA) [Concomitant]

REACTIONS (2)
  - BRADYCARDIA [None]
  - MYOCARDIAL INFARCTION [None]
